FAERS Safety Report 18125585 (Version 1)
Quarter: 2020Q3

REPORT INFORMATION
  Report Type: Spontaneous
  Country: US (occurrence: US)
  Receive Date: 20200808
  Receipt Date: 20200808
  Transmission Date: 20201103
  Serious: Yes (Other)
  Sender: FDA-Public Use
  Company Number: US-ASTRAZENECA-2020SE98064

PATIENT
  Age: 52 Year
  Sex: Female

DRUGS (1)
  1. ZOMIG [Suspect]
     Active Substance: ZOLMITRIPTAN
     Dosage: 1 SPRAY IN 1 NOSTRIL AT ONSET OF MIGRAINE. MAY REPEAT IN 2 HOURS IF NEEDED. NOT TO EXCEED 10MG IN...
     Route: 045

REACTIONS (2)
  - Product dose omission issue [Unknown]
  - Head discomfort [Not Recovered/Not Resolved]

NARRATIVE: CASE EVENT DATE: 20200319
